FAERS Safety Report 12781236 (Version 1)
Quarter: 2016Q3

REPORT INFORMATION
  Report Type: Spontaneous
  Country: US (occurrence: US)
  Receive Date: 20160926
  Receipt Date: 20160926
  Transmission Date: 20161109
  Serious: No
  Sender: FDA-Public Use
  Company Number: US-GLENMARK PHARMACEUTICALS INC, USA.-2015GMK018982

PATIENT
  Age: 52 Year
  Sex: Male

DRUGS (4)
  1. CETIRIZINE [Concomitant]
     Active Substance: CETIRIZINE HYDROCHLORIDE
     Indication: MASTOCYTOSIS
     Dosage: UNK
  2. RANITIDINE. [Concomitant]
     Active Substance: RANITIDINE
     Indication: MASTOCYTOSIS
     Dosage: UNK
  3. EPINEPHRINE. [Concomitant]
     Active Substance: EPINEPHRINE
     Indication: MASTOCYTOSIS
     Dosage: UNK
  4. MONTELUKAST [Suspect]
     Active Substance: MONTELUKAST SODIUM
     Indication: MASTOCYTOSIS
     Dosage: UNK

REACTIONS (1)
  - Off label use [Unknown]
